FAERS Safety Report 7924418-5 (Version None)
Quarter: 2011Q4

REPORT INFORMATION
  Report Type: 
  Country: None (occurrence: None)
  Receive Date: 20111117
  Receipt Date: 20110322
  Transmission Date: 20120403
  Serious: No
  Sender: FDA-Public Use
  Company Number: US-AMGEN-USASP2011015562

PATIENT
  Sex: Female
  Weight: 90.703 kg

DRUGS (11)
  1. BENADRYL [Concomitant]
     Dosage: 25 MG, UNK
  2. ALLEGRA [Concomitant]
     Dosage: 30 MG, UNK
  3. PRAVASTATIN [Concomitant]
     Dosage: 10 MG, UNK
  4. LEVOTHYROXINE SODIUM [Concomitant]
     Dosage: 50 MG, UNK
  5. IBUPROFEN [Concomitant]
     Dosage: 200 MG, UNK
  6. LISINOPRIL [Concomitant]
     Dosage: 2.5 MG, UNK
  7. FEXOFENADINE [Concomitant]
     Dosage: 30 MG, UNK
  8. AMITRIPTYLINE HCL [Concomitant]
     Dosage: 2.5 MG, UNK
  9. FLAXSEED OIL [Concomitant]
     Dosage: 1000 MG, UNK
  10. MULTIVITAMIN                       /00097801/ [Concomitant]
  11. ENBREL [Suspect]
     Indication: PRODUCT USED FOR UNKNOWN INDICATION
     Dosage: 50 MG, QWK
     Route: 058

REACTIONS (1)
  - URINARY TRACT INFECTION [None]
